FAERS Safety Report 7805910-0 (Version None)
Quarter: 2011Q4

REPORT INFORMATION
  Report Type: 
  Country: None (occurrence: None)
  Receive Date: 20111011
  Receipt Date: 20111003
  Transmission Date: 20120403
  Serious: No
  Sender: FDA-Public Use
  Company Number: US-BIOGENIDEC-2011BI037637

PATIENT
  Sex: Male

DRUGS (3)
  1. STEROIDS (NOS) [Concomitant]
  2. AVONEX [Suspect]
     Indication: MULTIPLE SCLEROSIS
     Route: 030
     Dates: start: 19961101, end: 20061231
  3. REBIF [Concomitant]

REACTIONS (5)
  - MUSCULOSKELETAL STIFFNESS [None]
  - COORDINATION ABNORMAL [None]
  - SENSORY DISTURBANCE [None]
  - GAIT DISTURBANCE [None]
  - DYSSTASIA [None]
